FAERS Safety Report 6402638-9 (Version None)
Quarter: 2009Q4

REPORT INFORMATION
  Report Type: 
  Country: None (occurrence: None)
  Receive Date: 20091009
  Receipt Date: 20090930
  Transmission Date: 20100525
  Serious: Yes (Disabling)
  Sender: FDA-Public Use
  Company Number: ADR34882009

PATIENT
  Sex: Male

DRUGS (6)
  1. CIPROFLOXACIN [Suspect]
     Indication: PROSTATITIS
     Dosage: 500 MG ORAL
     Route: 048
     Dates: start: 20070216, end: 20070219
  2. DONEPEZIL HCL [Concomitant]
  3. ASPIRIN [Concomitant]
  4. BENDROFLUAZIDE [Concomitant]
  5. BISOPROLOL [Concomitant]
  6. FINASTERIDE [Concomitant]

REACTIONS (2)
  - DYSKINESIA [None]
  - TREMOR [None]
